FAERS Safety Report 8599292-7 (Version None)
Quarter: 2012Q3

REPORT INFORMATION
  Report Type: 
  Country: None (occurrence: None)
  Receive Date: 20120816
  Receipt Date: 20120801
  Transmission Date: 20120928
  Serious: Yes (Other)
  Sender: FDA-Public Use
  Company Number: DE-FRI-1000037726

PATIENT
  Sex: Female

DRUGS (10)
  1. MEMANTINE HCL [Suspect]
     Dosage: 30 MG
     Dates: start: 20100127, end: 20100128
  2. MEMANTINE HCL [Suspect]
  3. HALDOL [Concomitant]
     Indication: MALAISE
     Dosage: 15 DROPS
     Dates: start: 20100121, end: 20100127
  4. MEMANTINE HCL [Suspect]
     Indication: PAIN
     Dosage: 90 MG
     Dates: start: 20100123, end: 20100123
  5. MEMANTINE HCL [Suspect]
     Indication: COMPLEX REGIONAL PAIN SYNDROME
     Dosage: 60 MG
     Dates: start: 20100125, end: 20100126
  6. MEMANTINE HCL [Suspect]
  7. MEMANTINE HCL [Suspect]
  8. MEMANTINE HCL [Suspect]
  9. HALDOL [Concomitant]
     Indication: HALLUCINATION
  10. MEMANTINE HCL [Suspect]
     Indication: NEURALGIA

REACTIONS (11)
  - THERAPEUTIC RESPONSE UNEXPECTED [None]
  - PRE-EXISTING CONDITION IMPROVED [None]
  - RESTLESSNESS [None]
  - FATIGUE [None]
  - HEADACHE [None]
  - GAIT DISTURBANCE [None]
  - SOMNOLENCE [None]
  - INITIAL INSOMNIA [None]
  - PRURITUS [None]
  - DIZZINESS [None]
  - OFF LABEL USE [None]
